FAERS Safety Report 13895931 (Version 1)
Quarter: 2017Q3

REPORT INFORMATION
  Report Type: Spontaneous
  Country: US (occurrence: None)
  Receive Date: 20170816
  Receipt Date: 20170816
  Transmission Date: 20171127
  Serious: Yes (Hospitalization)
  Sender: FDA-Public Use
  Company Number: None

PATIENT
  Age: 80 Year
  Sex: Male

DRUGS (1)
  1. DALTEPARIN 15,000 INT^L UNITS [Suspect]
     Active Substance: DALTEPARIN
     Indication: VENA CAVA THROMBOSIS
     Route: 058
     Dates: start: 20170707

REACTIONS (7)
  - Chest pain [None]
  - Asthenia [None]
  - Cardiac failure congestive [None]
  - Dyspnoea [None]
  - Atrial flutter [None]
  - Hypotension [None]
  - Acute myocardial infarction [None]

NARRATIVE: CASE EVENT DATE: 20170730
